FAERS Safety Report 10211139 (Version 1)
Quarter: 2014Q2

REPORT INFORMATION
  Report Type: Spontaneous
  Country: GB (occurrence: None)
  Receive Date: 20140528
  Receipt Date: 20140528
  Transmission Date: 20141212
  Serious: Yes (Life-Threatening)
  Sender: FDA-Public Use
  Company Number: GB-LHC-2014044

PATIENT
  Sex: Male
  Weight: 24 kg

DRUGS (6)
  1. NITROUS OXIDE [Suspect]
     Indication: GENERAL ANAESTHESIA
     Route: 042
  2. CISATRACURIUM [Concomitant]
  3. FENTANYL [Concomitant]
  4. SEVOFLURANE [Concomitant]
  5. BRUFEN [Concomitant]
  6. PARACETAMOL [Concomitant]

REACTIONS (1)
  - Anaphylactic reaction [None]
